FAERS Safety Report 7572780-8 (Version None)
Quarter: 2011Q2

REPORT INFORMATION
  Report Type: 
  Country: None (occurrence: None)
  Receive Date: 20110627
  Receipt Date: 20110621
  Transmission Date: 20111010
  Serious: No
  Sender: FDA-Public Use
  Company Number: US-PFIZER INC-2011071266

PATIENT
  Sex: Female

DRUGS (21)
  1. HYDROCHLOROTHIAZIDE [Concomitant]
     Dosage: 12.5 MG, 1 EVERY AM
     Route: 048
  2. NYSTATIN [Concomitant]
     Dosage: 100000 U/ML, 4X/DAY
  3. FLUOXETINE HYDROCHLORIDE [Concomitant]
     Dosage: 40 MG, 1X/DAY
     Route: 048
  4. PRAVASTATIN SODIUM [Concomitant]
     Dosage: 20 MG, 1X/DAY, 1 TABLET
     Route: 048
  5. SOLU-MEDROL [Suspect]
     Indication: ASTHMA
     Dosage: 125 MG, SINGLE
     Route: 030
     Dates: start: 20110330, end: 20110330
  6. ESTRADIOL [Concomitant]
     Dosage: 0.5 MG, 1X/DAY, 1 TABLET
     Route: 048
  7. TRAMADOL HYDROCHLORIDE [Concomitant]
     Indication: PAIN
     Dosage: 50 MG, AS NEEDED, 2 TABLET EVERY 8 HOURS
     Route: 048
  8. TUSSIONEX [Concomitant]
     Indication: COUGH
     Dosage: 5 ML, AS NEEDED, EVERY 12 HOURS
     Route: 048
  9. ALBUTEROL [Concomitant]
     Dosage: 0.083 %, 3-4 TIMES A DAY
  10. PREDNISONE [Concomitant]
     Dosage: 50 MG, 1X/DAY, 1 TABLET FOR 5 DAYS
     Route: 048
  11. NASACORT AQ [Concomitant]
     Dosage: 1X/DAY, 2 SPRAYS TO EACH NOSTRIL
     Route: 045
  12. CODEINE W/GUAIFENESIN [Concomitant]
     Indication: COUGH
     Dosage: 5 ML, EVERY 4 HRS, 100-10 MG/5ML
     Route: 048
  13. PULMICORT [Concomitant]
     Dosage: 0.25MG MG/2ML, 2X/DAY
     Route: 045
  14. ACETAMINOPHEN AND HYDROCODONE BITARTRATE [Concomitant]
     Indication: PAIN
     Dosage: 5-325 MG, 1 TABLET EVERY 6-8 HOURS AS NEEDED
     Route: 048
  15. SYNTHROID [Concomitant]
     Dosage: 0.075 MG, 1X/DAY
     Route: 048
  16. METFORMIN HYDROCHLORIDE [Concomitant]
     Dosage: 500 MG, 1X/DAY, 1 TABLET
     Route: 048
  17. ALLOPURINOL [Concomitant]
     Dosage: 300 MG, 1X/DAY, 1 TABLET
     Route: 048
  18. OMEPRAZOLE [Concomitant]
     Dosage: 20 MG, 1X/DAY, 1 TABLET PER DOCTOR REGISTER
  19. MUPIROCIN [Concomitant]
     Dosage: UNK
  20. ZYRTEC [Concomitant]
     Dosage: 10 MG, 1X/DAY, 1 TABLET
     Route: 048
  21. AUGMENTIN '125' [Concomitant]
     Dosage: 875-125 MG TABLET, 2X/DAY, 1 TABLET FOR 10 DAYS
     Route: 048

REACTIONS (4)
  - INJECTION SITE PAIN [None]
  - MUSCULAR WEAKNESS [None]
  - PAIN IN EXTREMITY [None]
  - MUSCULOSKELETAL PAIN [None]
